FAERS Safety Report 20336596 (Version 2)
Quarter: 2022Q1

REPORT INFORMATION
  Report Type: Spontaneous
  Country: JP (occurrence: JP)
  Receive Date: 20220114
  Receipt Date: 20220131
  Transmission Date: 20220423
  Serious: Yes (Other)
  Sender: FDA-Public Use
  Company Number: JP-SA-2022SA011496

PATIENT
  Age: 37 Year
  Sex: Male

DRUGS (1)
  1. DUPILUMAB [Suspect]
     Active Substance: DUPILUMAB
     Indication: Dermatitis atopic
     Dosage: UNK
     Route: 065

REACTIONS (8)
  - Anaplastic large-cell lymphoma [Not Recovered/Not Resolved]
  - Lymphadenopathy [Recovered/Resolved]
  - Skin mass [Recovered/Resolved]
  - Papule [Recovered/Resolved]
  - Dry skin [Not Recovered/Not Resolved]
  - Pruritus [Not Recovered/Not Resolved]
  - Eczema [Not Recovered/Not Resolved]
  - Perivascular dermatitis [Not Recovered/Not Resolved]
